FAERS Safety Report 4689375-6 (Version None)
Quarter: 2005Q2

REPORT INFORMATION
  Report Type: 
  Country: None (occurrence: None)
  Receive Date: 20050608
  Receipt Date: 20050228
  Transmission Date: 20051028
  Serious: No
  Sender: FDA-Public Use
  Company Number: 2005-BP-01205BP

PATIENT
  Age: 75 Year
  Sex: Male

DRUGS (7)
  1. SPIRIVA [Suspect]
     Indication: CHRONIC OBSTRUCTIVE PULMONARY DISEASE
     Dosage: PRN (18 MCG, 1 CAP QD PRN), IH
     Route: 055
     Dates: start: 20040501
  2. SPIRIVA [Suspect]
     Indication: EMPHYSEMA
  3. ALBUTEROL [Concomitant]
  4. CARTIA(DILTIAZEM HYDROCHLORIDE) [Concomitant]
  5. COUMADIN [Concomitant]
  6. HYDROCHLOROTHIAZIDE [Concomitant]
  7. COZAAR [Concomitant]

REACTIONS (1)
  - DRUG INEFFECTIVE [None]
